FAERS Safety Report 8866379 (Version 2)
Quarter: 2012Q4

REPORT INFORMATION
  Report Type: Report from Study
  Country: JP (occurrence: JP)
  Receive Date: 20121025
  Receipt Date: 20121105
  Transmission Date: 20130627
  Serious: Yes (Hospitalization)
  Sender: FDA-Public Use
  Company Number: JP-ACTELION-A-CH2012-72834

PATIENT
  Age: 67 Year
  Sex: Female
  Weight: 62.6 kg

DRUGS (2)
  1. TRACLEER [Suspect]
     Indication: PULMONARY ARTERIAL HYPERTENSION
     Dosage: 62.5 mg, qd
     Route: 048
     Dates: start: 20120224, end: 20120518
  2. BERAPROST SODIUM [Concomitant]

REACTIONS (3)
  - Hepatic function abnormal [Recovered/Resolved]
  - Aspartate aminotransferase increased [Recovered/Resolved]
  - Alanine aminotransferase increased [Recovered/Resolved]
